FAERS Safety Report 7408520-2 (Version None)
Quarter: 2011Q1

REPORT INFORMATION
  Report Type: 
  Country: None (occurrence: None)
  Receive Date: 20110301
  Receipt Date: 20100928
  Transmission Date: 20110831
  Serious: Yes (Other)
  Sender: FDA-Public Use
  Company Number: US-JNJFOC-20100908894

PATIENT
  Sex: Female
  Weight: 133.8111 kg

DRUGS (1)
  1. MOTRIN [Suspect]
     Indication: BACK PAIN
     Dosage: 800 MG, 3 IN 1 DAY, ORAL
     Route: 048
     Dates: start: 20080101

REACTIONS (2)
  - UPPER GASTROINTESTINAL HAEMORRHAGE [None]
  - HYPERSENSITIVITY [None]
